FAERS Safety Report 21100550 (Version 1)
Quarter: 2022Q3

REPORT INFORMATION
  Report Type: Spontaneous
  Country: CN (occurrence: CN)
  Receive Date: 20220719
  Receipt Date: 20220719
  Transmission Date: 20221026
  Serious: Yes (Hospitalization, Other)
  Sender: FDA-Public Use
  Company Number: CN-DENTSPLY-2022SCDP000191

PATIENT
  Age: 33 Year
  Sex: Female
  Weight: 100 kg

DRUGS (6)
  1. LIDOCAINE [Suspect]
     Active Substance: LIDOCAINE
     Indication: Epidural anaesthesia
     Dosage: 3 MILLILITER TOTAL 2 % LIDOCAINE (12ML FRESH 0.83% ALKALIZED LIDOCAINE (LALK) (15ML 2% LIDOCAINE PLU
     Route: 008
  2. LIDOCAINE [Suspect]
     Active Substance: LIDOCAINE
     Dosage: 15 MILLILITER TOTAL 2 % LIDOCAINE (12ML FRESH 0.83% ALKALIZED LIDOCAINE (LALK) (15ML 2% LIDOCAINE PL
     Route: 008
  3. ROPIVACAINE [Suspect]
     Active Substance: ROPIVACAINE
     Indication: Epidural anaesthesia
     Dosage: 6 MILLILITRE PER HOUR 0.09 % ROPIVACAINE
     Route: 008
  4. ROPIVACAINE [Suspect]
     Active Substance: ROPIVACAINE
     Dosage: 15 MILLILITER TOTAL 0.75 % ROPIVACAINE
     Route: 008
  5. SODIUM BICARBONATE [Suspect]
     Active Substance: SODIUM BICARBONATE
     Indication: Epidural anaesthesia
     Dosage: 3 MILLILITER TOTAL 5% SODIUM BICARBONATE
     Route: 008
  6. SUFENTANIL [Concomitant]
     Active Substance: SUFENTANIL
     Indication: Analgesic therapy
     Dosage: 6 MILLILITRE PER HOUR 5 MCG/ML SUFENTANIL

REACTIONS (6)
  - Paraesthesia [None]
  - Muscular weakness [Recovered/Resolved]
  - Drug interaction [None]
  - Fall [Recovered/Resolved]
  - Hypoaesthesia [None]
  - Maternal exposure during delivery [Unknown]
